FAERS Safety Report 14996331 (Version 2)
Quarter: 2018Q4

REPORT INFORMATION
  Report Type: Spontaneous
  Country: JP (occurrence: JP)
  Receive Date: 20180611
  Receipt Date: 20181207
  Transmission Date: 20190204
  Serious: Yes (Death, Other)
  Sender: FDA-Public Use
  Company Number: JP-SANIK-2018SA146161AA

PATIENT
  Age: 79 Year
  Sex: Female

DRUGS (3)
  1. ARGATROBAN. [Concomitant]
     Active Substance: ARGATROBAN
     Indication: BRAIN STEM INFARCTION
     Dosage: 60 MG, QD
     Route: 065
  2. CILOSTAZOL. [Concomitant]
     Active Substance: CILOSTAZOL
     Indication: BRAIN STEM INFARCTION
     Dosage: 200 MG, QD
     Route: 065
  3. PLAVIX [Suspect]
     Active Substance: CLOPIDOGREL BISULFATE
     Indication: BRAIN STEM INFARCTION
     Dosage: UNK
     Route: 048

REACTIONS (4)
  - Haematemesis [Unknown]
  - Death [Fatal]
  - Shock [Unknown]
  - Melaena [Unknown]
